FAERS Safety Report 10528059 (Version 14)
Quarter: 2021Q2

REPORT INFORMATION
  Report Type: Spontaneous
  Country: GB (occurrence: GB)
  Receive Date: 20141020
  Receipt Date: 20210514
  Transmission Date: 20210716
  Serious: Yes (Life-Threatening, Hospitalization, Congenital Anomaly, Other)
  Sender: FDA-Public Use
  Company Number: PHHY2014GB136022

PATIENT
  Age: 1 Year
  Sex: Female
  Weight: 2.27 kg

DRUGS (19)
  1. COCODAMOL [Suspect]
     Active Substance: ACETAMINOPHEN\CODEINE PHOSPHATE
     Dosage: STAGGERED PARACETAMOL OVERDOSE(UNINTENTIONAL) OVER WEEKS AND DAYS PRIOR TO DELIVERY
     Route: 064
  2. PERFALGAN [Suspect]
     Active Substance: ACETAMINOPHEN
     Indication: FOETAL EXPOSURE DURING PREGNANCY
     Dosage: MATERNAL DOSE: UNK
     Route: 064
  3. COCODAMOL [Suspect]
     Active Substance: ACETAMINOPHEN\CODEINE PHOSPHATE
     Dosage: UNK, TABLET
     Route: 064
  4. COCODAMOL [Suspect]
     Active Substance: ACETAMINOPHEN\CODEINE PHOSPHATE
     Dosage: 4 OT, QD
     Route: 064
  5. COCODAMOL [Suspect]
     Active Substance: ACETAMINOPHEN\CODEINE PHOSPHATE
     Route: 064
  6. COCODAMOL [Suspect]
     Active Substance: ACETAMINOPHEN\CODEINE PHOSPHATE
     Route: 064
  7. CODEINE [Suspect]
     Active Substance: CODEINE
     Route: 064
  8. COCODAMOL [Suspect]
     Active Substance: ACETAMINOPHEN\CODEINE PHOSPHATE
     Indication: FOETAL EXPOSURE DURING PREGNANCY
     Dosage: MATERNAL DOSE: UNK
     Route: 064
  9. CODEINE [Suspect]
     Active Substance: CODEINE
     Indication: FOETAL EXPOSURE DURING PREGNANCY
     Dosage: MATERNAL DOSE: 4 OT, QD
     Route: 064
  10. PERFALGAN [Suspect]
     Active Substance: ACETAMINOPHEN
     Dosage: STAGGERED PARACETAMOL OVERDOSE (UNINTENTIONAL) OVER WEEKS AND DAYS PRIOR TO DELIVERY
     Route: 064
  11. PARACETAMOL [Suspect]
     Active Substance: ACETAMINOPHEN
     Indication: FOETAL EXPOSURE DURING PREGNANCY
     Dosage: MATERNAL DOSE: UNK (UP TO FOUR TIMES A DAY)
     Route: 064
  12. PARACETAMOL [Suspect]
     Active Substance: ACETAMINOPHEN
     Dosage: MATERNAL DOSE:4 OT QD
     Route: 064
  13. CODEINE [Suspect]
     Active Substance: CODEINE
     Route: 064
  14. PERFALGAN [Suspect]
     Active Substance: ACETAMINOPHEN
     Dosage: UNK, 4X/DAY (QID)
     Route: 064
  15. CODEINE [Suspect]
     Active Substance: CODEINE
     Dosage: 4 OT, QD
     Route: 064
  16. PERFALGAN [Suspect]
     Active Substance: ACETAMINOPHEN
     Dosage: MATERNAL DOSE: UNK (UP TO FOUR TIMES A DAY)
     Route: 064
  17. PERFALGAN [Suspect]
     Active Substance: ACETAMINOPHEN
     Dosage: UP TO FOUR TIMES A DAY, PERFALGAN
     Route: 064
  18. COCODAMOL [Suspect]
     Active Substance: ACETAMINOPHEN\CODEINE PHOSPHATE
     Dosage: MATERNAL DOSE: UNK (QID)
     Route: 064
  19. COCODAMOL [Suspect]
     Active Substance: ACETAMINOPHEN\CODEINE PHOSPHATE
     Dosage: ABUSE,OVERDOSE
     Route: 064

REACTIONS (22)
  - Hepatic function abnormal [Recovered/Resolved]
  - Gingival discomfort [Unknown]
  - Heart rate irregular [Unknown]
  - Overdose [Unknown]
  - Foetal exposure during pregnancy [Unknown]
  - Foetal arrhythmia [Recovered/Resolved]
  - Hepatotoxicity [Recovered/Resolved]
  - Foetal monitoring abnormal [Unknown]
  - Respiratory distress [Recovered/Resolved]
  - Incorrect product administration duration [Unknown]
  - Liver function test abnormal [Recovered/Resolved]
  - Drug withdrawal syndrome neonatal [Recovered/Resolved]
  - Developmental delay [Not Recovered/Not Resolved]
  - Malaise [Unknown]
  - Aphasia [Unknown]
  - Language disorder [Unknown]
  - Premature baby [Unknown]
  - Gait inability [Unknown]
  - Jaundice neonatal [Recovered/Resolved]
  - Tremor [Unknown]
  - Dependence [Recovered/Resolved]
  - Low birth weight baby [Unknown]
